FAERS Safety Report 13647601 (Version 2)
Quarter: 2017Q2

REPORT INFORMATION
  Report Type: Spontaneous
  Country: JP (occurrence: JP)
  Receive Date: 20170613
  Receipt Date: 20170622
  Transmission Date: 20170830
  Serious: Yes (Death, Other)
  Sender: FDA-Public Use
  Company Number: JP-INCYTE CORPORATION-2017IN004501

PATIENT

DRUGS (1)
  1. JAKAVI [Suspect]
     Active Substance: RUXOLITINIB
     Indication: POLYCYTHAEMIA VERA
     Dosage: UNK
     Route: 048
     Dates: start: 201701, end: 201702

REACTIONS (9)
  - Anaemia [Unknown]
  - Oxygen saturation increased [Not Recovered/Not Resolved]
  - Hyperhidrosis [Unknown]
  - Platelet count decreased [Unknown]
  - Pyrexia [Unknown]
  - Acute leukaemia [Fatal]
  - Abdominal distension [Unknown]
  - Blood lactate dehydrogenase increased [Unknown]
  - White blood cell count increased [Unknown]

NARRATIVE: CASE EVENT DATE: 201701
